FAERS Safety Report 5092823-3 (Version None)
Quarter: 2006Q3

REPORT INFORMATION
  Report Type: 
  Country: None (occurrence: None)
  Receive Date: 20060727
  Receipt Date: 20060425
  Transmission Date: 20061208
  Serious: Yes (Other)
  Sender: FDA-Public Use
  Company Number: 2006056255

PATIENT
  Age: 51 Year
  Sex: Female
  Weight: 65.7716 kg

DRUGS (6)
  1. LYRICA [Suspect]
     Indication: MYALGIA
     Dosage: 150 MG (75 MG, 2 IN 1 D)
     Dates: start: 20060417
  2. METHADONE HCL [Suspect]
     Indication: PAIN
     Dates: end: 20060101
  3. KLONOPIN [Concomitant]
  4. SOMA [Concomitant]
  5. PERCOCET [Concomitant]
  6. ELAVIL [Concomitant]

REACTIONS (6)
  - ANXIETY [None]
  - ASTHENIA [None]
  - DRUG WITHDRAWAL SYNDROME [None]
  - FEAR [None]
  - FEELING ABNORMAL [None]
  - SOMNOLENCE [None]
